FAERS Safety Report 9248511 (Version 1)
Quarter: 2013Q2

REPORT INFORMATION
  Report Type: Report from Study
  Country: US (occurrence: US)
  Receive Date: 20130423
  Receipt Date: 20130423
  Transmission Date: 20140414
  Serious: Yes (Other)
  Sender: FDA-Public Use
  Company Number: PHEH2013US008908

PATIENT
  Age: 65 Year
  Sex: Female

DRUGS (6)
  1. GLEEVEC [Suspect]
     Indication: LEUKAEMIA
     Dosage: 400 MG, QD (1 TABLET BY MOUTH EVERY DAY)
     Dates: start: 2005
  2. CENTRUM SILVER [Concomitant]
  3. LIPITOR [Concomitant]
     Dosage: 10 MG, UNK
  4. ADVIL COLD [Concomitant]
  5. SINUS [Concomitant]
     Dosage: UNK UKN, UNK
  6. VITAMIN B12 [Concomitant]
     Dosage: UNK UKN, UNK

REACTIONS (6)
  - Skin cancer [Unknown]
  - Loss of consciousness [Unknown]
  - Rhinorrhoea [Unknown]
  - Dizziness [Unknown]
  - Blood iron decreased [Unknown]
  - Red blood cell count decreased [Unknown]
